FAERS Safety Report 24727158 (Version 1)
Quarter: 2024Q4

REPORT INFORMATION
  Report Type: Spontaneous
  Country: DE (occurrence: DE)
  Receive Date: 20241212
  Receipt Date: 20241212
  Transmission Date: 20250115
  Serious: Yes (Hospitalization, Other)
  Sender: INCYTE
  Company Number: DE-EVENT-000809

PATIENT

DRUGS (1)
  1. PEMAZYRE [Suspect]
     Active Substance: PEMIGATINIB
     Indication: Salivary gland neoplasm
     Dosage: UNK
     Route: 048

REACTIONS (3)
  - Delirium [Unknown]
  - Blood phosphorus decreased [Unknown]
  - Off label use [Unknown]
